FAERS Safety Report 25045734 (Version 1)
Quarter: 2025Q1

REPORT INFORMATION
  Report Type: Report from Study
  Country: FR (occurrence: FR)
  Receive Date: 20250306
  Receipt Date: 20250306
  Transmission Date: 20250409
  Serious: Yes (Other)
  Sender: ROCHE
  Company Number: FR-ROCHE-10000222456

PATIENT

DRUGS (2)
  1. RITUXIMAB [Suspect]
     Active Substance: RITUXIMAB
     Indication: Pemphigus
     Route: 042
  2. PREDNISONE [Suspect]
     Active Substance: PREDNISONE
     Indication: Pemphigus
     Route: 065

REACTIONS (15)
  - COVID-19 [Unknown]
  - Retinal vein occlusion [Unknown]
  - Rash pustular [Unknown]
  - Psychiatric decompensation [Unknown]
  - Cytomegalovirus infection [Unknown]
  - Campylobacter bacteraemia [Unknown]
  - Pneumocystis jirovecii pneumonia [Unknown]
  - Aspergillus infection [Unknown]
  - Hyperthermia [Unknown]
  - Hypotension [Unknown]
  - Asthma [Unknown]
  - Rash [Unknown]
  - Eosinophilia [Unknown]
  - Neutropenia [Unknown]
  - Dyspnoea [Unknown]
